FAERS Safety Report 9570917 (Version 1)
Quarter: 2013Q4

REPORT INFORMATION
  Report Type: Spontaneous
  Country: BR (occurrence: BR)
  Receive Date: 20131001
  Receipt Date: 20131001
  Transmission Date: 20140711
  Serious: Yes (Other)
  Sender: FDA-Public Use
  Company Number: BR-AMGEN-BRASP2013068479

PATIENT
  Age: 64 Year
  Sex: Female
  Weight: 73 kg

DRUGS (2)
  1. ENBREL [Suspect]
     Indication: RHEUMATOID ARTHRITIS
     Dosage: 50 MG, WEEKLY
     Route: 058
     Dates: start: 2011
  2. ATENOLOL [Concomitant]
     Dosage: 1 TABLET (25 MG), TWICE A DAY
     Route: 048

REACTIONS (3)
  - Arthropathy [Unknown]
  - Hypersensitivity [Unknown]
  - Blister [Unknown]
